FAERS Safety Report 14197977 (Version 15)
Quarter: 2019Q2

REPORT INFORMATION
  Report Type: Spontaneous
  Country: IT (occurrence: IT)
  Receive Date: 20171117
  Receipt Date: 20190404
  Transmission Date: 20190711
  Serious: Yes (Other)
  Sender: FDA-Public Use
  Company Number: IT-009507513-1711ITA006406

PATIENT
  Age: 62 Year
  Sex: Female

DRUGS (2)
  1. ALENDROS 70MG COMPRESSE [Suspect]
     Active Substance: ALENDRONATE SODIUM
     Indication: OSTEOPOROSIS
     Dosage: 70 MG, QW
     Route: 048
     Dates: start: 20130923, end: 20171104
  2. DIBASE [Concomitant]
     Active Substance: CHOLECALCIFEROL
     Indication: OSTEOPOROSIS
     Dosage: 1 DF, UNKNOWN
     Route: 048
     Dates: start: 20130101, end: 20171102

REACTIONS (3)
  - Osteonecrosis of jaw [Not Recovered/Not Resolved]
  - Jaw fistula [Not Recovered/Not Resolved]
  - Pain in jaw [Not Recovered/Not Resolved]

NARRATIVE: CASE EVENT DATE: 20170922
